FAERS Safety Report 11293386 (Version 2)
Quarter: 2015Q3

REPORT INFORMATION
  Report Type: Spontaneous
  Country: US (occurrence: US)
  Receive Date: 20150722
  Receipt Date: 20150730
  Transmission Date: 20151125
  Serious: Yes (Other)
  Sender: FDA-Public Use
  Company Number: US-ASTRAZENECA-2015SE70065

PATIENT
  Age: 58 Year
  Sex: Female

DRUGS (19)
  1. DEPRESSION MEDICATIONS [Concomitant]
     Indication: DEPRESSION
  2. PULMICORT FLEXHALER [Suspect]
     Active Substance: BUDESONIDE
     Indication: CHRONIC OBSTRUCTIVE PULMONARY DISEASE
     Dosage: 1 PUFF TWICE A DAY
     Route: 055
     Dates: start: 20150107
  3. NEXIUM [Suspect]
     Active Substance: ESOMEPRAZOLE MAGNESIUM
     Indication: GASTROOESOPHAGEAL REFLUX DISEASE
     Route: 048
  4. BLOOD PRESSURE MEDICATIONS [Concomitant]
     Active Substance: UNSPECIFIED INGREDIENT
  5. KIDNEY MEDICATIONS [Concomitant]
     Active Substance: UNSPECIFIED INGREDIENT
     Indication: RENAL DISORDER
  6. ANXIETY MEDICATIONS [Concomitant]
     Indication: ANXIETY
  7. CHOLESTEROL MEDICATIONS [Concomitant]
     Active Substance: UNSPECIFIED INGREDIENT
     Indication: BLOOD CHOLESTEROL ABNORMAL
  8. NARCAN [Concomitant]
     Active Substance: NALOXONE HYDROCHLORIDE
  9. POLLEN [Concomitant]
     Active Substance: BEE POLLEN
  10. ALBUTEROL SULFATE. [Concomitant]
     Active Substance: ALBUTEROL SULFATE
     Indication: CHRONIC OBSTRUCTIVE PULMONARY DISEASE
     Dosage: 2.5MG
     Route: 055
  11. PAIN MEDICATIONS [Concomitant]
     Active Substance: UNSPECIFIED INGREDIENT
     Indication: PAIN
  12. NEXIUM [Suspect]
     Active Substance: ESOMEPRAZOLE MAGNESIUM
     Indication: GASTROOESOPHAGEAL REFLUX DISEASE
     Dosage: SOME TIMES 40  MG BID
     Route: 048
  13. ALBUTEROL SULFATE. [Concomitant]
     Active Substance: ALBUTEROL SULFATE
     Indication: CHRONIC OBSTRUCTIVE PULMONARY DISEASE
     Dosage: 0.083 %  3 TIMES A DAY
     Route: 055
  14. SULFONAMIDE [Concomitant]
     Active Substance: UNSPECIFIED INGREDIENT
  15. ALBUTEROL SULFATE. [Concomitant]
     Active Substance: ALBUTEROL SULFATE
     Indication: CHRONIC OBSTRUCTIVE PULMONARY DISEASE
     Dosage: 3ML
     Route: 055
  16. STIRIVA [Concomitant]
     Indication: CHRONIC OBSTRUCTIVE PULMONARY DISEASE
     Dosage: STIRIVA 2 CAPSULES IN THE MORNING
     Route: 055
  17. STIRIVA [Concomitant]
     Indication: DYSPNOEA
     Dosage: STIRIVA 2 CAPSULES IN THE MORNING
     Route: 055
  18. BLOOD THINNER [Concomitant]
     Active Substance: UNSPECIFIED INGREDIENT
     Indication: ANTICOAGULANT THERAPY
  19. RENAL MEDICATIONS [Concomitant]
     Indication: RENAL DISORDER

REACTIONS (15)
  - Immune thrombocytopenic purpura [Unknown]
  - Dyspnoea [Unknown]
  - Oesophageal disorder [Unknown]
  - Intentional product misuse [Unknown]
  - Dizziness [Unknown]
  - Systemic lupus erythematosus [Unknown]
  - Memory impairment [Unknown]
  - Antiphospholipid syndrome [Unknown]
  - Weight increased [Unknown]
  - Cerebrovascular accident [Unknown]
  - Hypertension [Unknown]
  - Device issue [Unknown]
  - Diabetes mellitus [Unknown]
  - Blindness [Unknown]
  - Malaise [Unknown]

NARRATIVE: CASE EVENT DATE: 20150714
